FAERS Safety Report 7760311-9 (Version None)
Quarter: 2011Q3

REPORT INFORMATION
  Report Type: 
  Country: None (occurrence: None)
  Receive Date: 20110919
  Receipt Date: 20110908
  Transmission Date: 20111222
  Serious: Yes (Life-Threatening, Other)
  Sender: FDA-Public Use
  Company Number: JP-JNJFOC-20110506335

PATIENT
  Sex: Male
  Weight: 50 kg

DRUGS (15)
  1. REMICADE [Suspect]
     Route: 042
  2. PREDNISOLONE [Concomitant]
     Dosage: TOTAL DAILY DOSE 4 MG
     Route: 048
     Dates: start: 20110323
  3. ISOTONIC SODIUM CHLORIDE [Concomitant]
     Route: 065
     Dates: start: 20110502, end: 20110502
  4. LOXONIN [Concomitant]
     Route: 048
     Dates: start: 20080204
  5. LANSOPRAZOLE [Concomitant]
     Dosage: TOTOAL DAILY DOSE 30 MG
     Route: 048
     Dates: start: 20090514
  6. ACTONEL [Concomitant]
     Route: 048
     Dates: start: 20080705
  7. REMICADE [Suspect]
     Dosage: 19TH DOSE
     Route: 042
     Dates: start: 20110502
  8. METHOTREXATE [Concomitant]
     Route: 048
     Dates: start: 20080318, end: 20080801
  9. REMICADE [Suspect]
     Route: 042
     Dates: start: 20091026
  10. REMICADE [Suspect]
     Route: 042
     Dates: start: 20110323
  11. METHOTREXATE [Concomitant]
     Indication: RHEUMATOID ARTHRITIS
     Route: 048
     Dates: start: 20080108, end: 20080317
  12. LEUCOVORIN CALCIUM [Concomitant]
     Route: 048
     Dates: start: 20090421
  13. REMICADE [Suspect]
     Indication: RHEUMATOID ARTHRITIS
     Route: 042
     Dates: start: 20090511
  14. PREDNISOLONE [Concomitant]
     Dosage: 20 MG GIVEN AT 13:00 HOURS OF THE SAME DAY
     Route: 065
     Dates: start: 20110502, end: 20110502
  15. ULCERLMIN [Concomitant]
     Dosage: TOTAL DAILY DOSE 3 GM
     Route: 048
     Dates: start: 20090514

REACTIONS (3)
  - HYPERTENSIVE CRISIS [None]
  - ANAPHYLACTIC SHOCK [None]
  - URINARY RETENTION [None]
